FAERS Safety Report 20995416 (Version 2)
Quarter: 2022Q3

REPORT INFORMATION
  Report Type: Report from Study
  Country: US (occurrence: US)
  Receive Date: 20220622
  Receipt Date: 20220715
  Transmission Date: 20221027
  Serious: Yes (Hospitalization, Other)
  Sender: FDA-Public Use
  Company Number: US-BRISTOL-MYERS SQUIBB COMPANY-BMS-2022-006537

PATIENT
  Age: 36 Year
  Sex: Male
  Weight: 98.70 kg

DRUGS (4)
  1. BRENTUXIMAB VEDOTIN [Suspect]
     Active Substance: BRENTUXIMAB VEDOTIN
     Indication: Hodgkin^s disease
     Dosage: ON DAYS 1 AND 15 OF EVERY 28-DAY CYCLE
     Route: 042
     Dates: start: 20201223, end: 20210525
  2. DACARBAZINE [Suspect]
     Active Substance: DACARBAZINE
     Indication: Hodgkin^s disease
     Dosage: ON DAYS 1 AND 15 OF EVERY 28-DAY CYCLE
     Route: 042
     Dates: start: 20201223, end: 20210525
  3. DOXORUBICIN HYDROCHLORIDE [Suspect]
     Active Substance: DOXORUBICIN HYDROCHLORIDE
     Indication: Hodgkin^s disease
     Dosage: ON DAYS 1 AND 15 OF EVERY 28-DAY CYCLE
     Route: 042
     Dates: start: 20201223, end: 20210525
  4. COVID-19 VACCINE [Concomitant]
     Indication: Prophylaxis
     Dosage: UNK
     Route: 065

REACTIONS (1)
  - Myxoedema coma [Recovered/Resolved]

NARRATIVE: CASE EVENT DATE: 20211223
